FAERS Safety Report 5988583-1 (Version None)
Quarter: 2008Q4

REPORT INFORMATION
  Report Type: 
  Country: None (occurrence: None)
  Receive Date: 20081210
  Receipt Date: 20081202
  Transmission Date: 20090506
  Serious: Yes (Other)
  Sender: FDA-Public Use
  Company Number: US-ROCHE-595744

PATIENT
  Age: 38 Year
  Sex: Female
  Weight: 59.4 kg

DRUGS (9)
  1. VESANOID [Suspect]
     Route: 048
     Dates: start: 20081006, end: 20081019
  2. ACYCLOVIR [Concomitant]
  3. FLUCONAZOLE [Concomitant]
     Indication: PROPHYLAXIS
     Route: 048
     Dates: start: 20081001, end: 20081101
  4. CEFTAZIDIME [Concomitant]
     Dosage: TAKEN EVERY 8 HOURS.
     Route: 042
     Dates: start: 20080929, end: 20081101
  5. ALLOPURINOL [Concomitant]
     Route: 048
     Dates: start: 20081002, end: 20081008
  6. IDANTOIN [Concomitant]
     Indication: ACUTE PROMYELOCYTIC LEUKAEMIA
     Route: 042
     Dates: start: 20081001, end: 20081006
  7. VANCOMYCIN [Concomitant]
     Dosage: TAKEN EVERY 12 HOURS.
     Route: 042
     Dates: start: 20081002, end: 20081101
  8. METOPROLOL TARTRATE [Concomitant]
     Indication: HYPERTENSION
     Dosage: ROUTE: IV/ORAL, STRENGTH: 5 MG/25 MG. TAKEN ONCE.
     Route: 050
     Dates: start: 20081005, end: 20081005
  9. FUROSEMIDE [Concomitant]
     Dosage: TAKEN DAILY.
     Route: 042
     Dates: start: 20081003, end: 20081101

REACTIONS (1)
  - PURPURA [None]
